FAERS Safety Report 8535454-2 (Version None)
Quarter: 2012Q3

REPORT INFORMATION
  Report Type: 
  Country: None (occurrence: None)
  Receive Date: 20120718
  Receipt Date: 20120718
  Transmission Date: 20120928
  Serious: Yes (Other)
  Sender: FDA-Public Use
  Company Number: None

PATIENT
  Age: 42 Year
  Sex: Female
  Weight: 200 kg

DRUGS (1)
  1. PRANACTIN-CITRIC (13C-UREA) ORAL SOLUTION, 3G GRAM(S [Suspect]
     Indication: HELICOBACTER INFECTION
     Dosage: 1 DF DOSAGE FORM,  ORAL
     Route: 048
     Dates: start: 20110824, end: 20110824

REACTIONS (2)
  - DYSPNOEA [None]
  - BRONCHOSPASM [None]
